FAERS Safety Report 6079004-1 (Version None)
Quarter: 2009Q1

REPORT INFORMATION
  Report Type: 
  Country: None (occurrence: None)
  Receive Date: 20090216
  Receipt Date: 20090203
  Transmission Date: 20090719
  Serious: Yes (Other)
  Sender: FDA-Public Use
  Company Number: US-ROCHE-552262

PATIENT
  Sex: Male
  Weight: 65.8 kg

DRUGS (3)
  1. ACCUTANE [Suspect]
     Indication: ACNE
     Route: 048
     Dates: start: 20000502, end: 20000521
  2. ACCUTANE [Suspect]
     Dosage: TAKE 1 CAPSULE BY MOUTH ON ODD DAYS AND 2 CAPSULES ON EVEN DAYS.
     Route: 048
     Dates: start: 20000601, end: 20000627
  3. ACCUTANE [Suspect]
     Route: 048
     Dates: start: 20000628, end: 20001006

REACTIONS (11)
  - ANXIETY [None]
  - COLITIS [None]
  - COLITIS ULCERATIVE [None]
  - DEPRESSION [None]
  - DRY SKIN [None]
  - EPISTAXIS [None]
  - HEADACHE [None]
  - INFLAMMATORY BOWEL DISEASE [None]
  - LIP DRY [None]
  - PANCREATIC INJURY [None]
  - PEPTIC ULCER [None]
